FAERS Safety Report 9086629 (Version 1)
Quarter: 2013Q1

REPORT INFORMATION
  Report Type: Spontaneous
  Country: ES (occurrence: ES)
  Receive Date: 20130131
  Receipt Date: 20130131
  Transmission Date: 20140127
  Serious: Yes (Other)
  Sender: FDA-Public Use
  Company Number: ES-WATSON-2012-19984

PATIENT
  Age: 56 Year
  Sex: Male

DRUGS (3)
  1. MORPHINE SULFATE (UNKNOWN) [Suspect]
     Indication: NEURALGIA
     Dosage: 34 MG, DAILY
     Route: 037
  2. MORPHINE SULFATE (UNKNOWN) [Suspect]
     Dosage: 3-6 MG/DAY, UNK
     Route: 065
  3. CLONIDINE [Suspect]
     Indication: NEURALGIA
     Dosage: 250-275 MICROG/DAY MAXIMUM DOSE 1271 MICROG/DAY
     Route: 065

REACTIONS (1)
  - Injection site granuloma [Recovered/Resolved]
